FAERS Safety Report 6189431-X (Version None)
Quarter: 2009Q2

REPORT INFORMATION
  Report Type: 
  Country: None (occurrence: None)
  Receive Date: 20090512
  Receipt Date: 20090512
  Transmission Date: 20091009
  Serious: Yes (Hospitalization)
  Sender: FDA-Public Use
  Company Number: None

PATIENT
  Sex: Male
  Weight: 96.7 kg

DRUGS (8)
  1. PEG-L ASPARAGINASE (PEGASPARGASE, ONCOSPAR) [Suspect]
     Dosage: 100 IU
     Dates: end: 20090428
  2. VINCRISTINE SULFATE [Suspect]
     Dosage: 2 MG
     Dates: end: 20090428
  3. CYCLOPHOSPHAMIDE [Suspect]
     Dosage: 2160 MG
     Dates: end: 20090410
  4. CYTARABINE [Suspect]
     Dosage: 1280 MG
     Dates: end: 20090420
  5. MERCAPTOPURINE [Suspect]
     Dosage: 750 MG
     Dates: end: 20090426
  6. METHOTREXATE [Suspect]
     Dosage: 45 MG
     Dates: end: 20090427
  7. BACTRIM [Concomitant]
  8. IV SOLU-CORTEF [Concomitant]

REACTIONS (6)
  - ANXIETY [None]
  - DYSPNOEA [None]
  - FLUSHING [None]
  - HYPERSENSITIVITY [None]
  - MEDICATION ERROR [None]
  - NAUSEA [None]
